FAERS Safety Report 5497787-6 (Version None)
Quarter: 2007Q4

REPORT INFORMATION
  Report Type: 
  Country: None (occurrence: None)
  Receive Date: 20071025
  Receipt Date: 20070228
  Transmission Date: 20080405
  Serious: No
  Sender: FDA-Public Use
  Company Number: A0641389A

PATIENT
  Sex: Female

DRUGS (4)
  1. ADVAIR DISKUS 100/50 [Suspect]
     Indication: ASTHMA
     Dates: start: 20060101
  2. PREDNISONE [Concomitant]
  3. ALBUTEROL [Concomitant]
     Route: 055
  4. ALBUTEROL [Concomitant]
     Route: 055

REACTIONS (2)
  - DRUG INEFFECTIVE [None]
  - MALAISE [None]
